FAERS Safety Report 7361983-3 (Version None)
Quarter: 2011Q1

REPORT INFORMATION
  Report Type: 
  Country: None (occurrence: None)
  Receive Date: 20110315
  Receipt Date: 20110315
  Transmission Date: 20110831
  Serious: No
  Sender: FDA-Public Use
  Company Number: None

PATIENT

DRUGS (1)
  1. INVEGA SUSTENNA [Suspect]
     Indication: SCHIZOPHRENIA

REACTIONS (6)
  - ERECTILE DYSFUNCTION [None]
  - FALL [None]
  - LOSS OF LIBIDO [None]
  - DIZZINESS [None]
  - SENILE GENITAL ATROPHY [None]
  - DEPRESSION [None]
